FAERS Safety Report 9850259 (Version 1)
Quarter: 2014Q1

REPORT INFORMATION
  Report Type: Spontaneous
  Country: DE (occurrence: DE)
  Receive Date: 20140128
  Receipt Date: 20140128
  Transmission Date: 20141002
  Serious: Yes (Congenital Anomaly)
  Sender: FDA-Public Use
  Company Number: GXKR2014DE000602

PATIENT
  Sex: 0

DRUGS (2)
  1. VENLAFAXINE [Suspect]
     Dosage: MATERNAL DOSE: 300 MG/D
     Route: 064
  2. FEMIBION [Concomitant]
     Dosage: MATERNAL DOSE: 0.8 MG/D
     Route: 064
     Dates: start: 20110124

REACTIONS (2)
  - Atrioventricular septal defect [Not Recovered/Not Resolved]
  - Hydrops foetalis [Not Recovered/Not Resolved]
